FAERS Safety Report 4515264-3 (Version None)
Quarter: 2004Q4

REPORT INFORMATION
  Report Type: 
  Country: None (occurrence: None)
  Receive Date: 20041126
  Receipt Date: 20041110
  Transmission Date: 20050328
  Serious: Yes (Other)
  Sender: FDA-Public Use
  Company Number: DE-2004-034830

PATIENT
  Age: 73 Year
  Sex: Male
  Weight: 80 kg

DRUGS (4)
  1. CAMPATH [Suspect]
     Indication: CHRONIC LYMPHOCYTIC LEUKAEMIA
     Dosage: 30 MG, SUBCUTANEOUS
     Route: 058
     Dates: start: 20040804, end: 20040811
  2. PARACETAMOL [Concomitant]
  3. CLEMASTINE FUMARATE [Concomitant]
  4. SOLU-DECORTIN-H (PREDNISOLONE SODIUM SUCCINATE) [Concomitant]

REACTIONS (6)
  - CHILLS [None]
  - HYPERTENSION [None]
  - PYREXIA [None]
  - RENAL FAILURE [None]
  - TACHYCARDIA [None]
  - TUMOUR LYSIS SYNDROME [None]
